FAERS Safety Report 10143971 (Version 1)
Quarter: 2014Q2

REPORT INFORMATION
  Report Type: Spontaneous
  Country: FR (occurrence: FR)
  Receive Date: 20140430
  Receipt Date: 20140430
  Transmission Date: 20141212
  Serious: Yes (Hospitalization, Other)
  Sender: FDA-Public Use
  Company Number: FR-B.I. PHARMACEUTICALS,INC./RIDGEFIELD-2014-BI-18569FF

PATIENT
  Age: 64 Year
  Sex: Female

DRUGS (2)
  1. SIFROL [Suspect]
     Indication: PARKINSON^S DISEASE
     Route: 048
     Dates: start: 2011, end: 20140323
  2. PARLODEL [Suspect]
     Indication: PARKINSON^S DISEASE
     Route: 048
     Dates: start: 1998, end: 2011

REACTIONS (2)
  - Tricuspid valve incompetence [Not Recovered/Not Resolved]
  - Cardiogenic shock [Not Recovered/Not Resolved]
